FAERS Safety Report 11318611 (Version 3)
Quarter: 2015Q4

REPORT INFORMATION
  Report Type: Spontaneous
  Country: IT (occurrence: IT)
  Receive Date: 20150729
  Receipt Date: 20151127
  Transmission Date: 20160304
  Serious: Yes (Hospitalization)
  Sender: FDA-Public Use
  Company Number: IT-ROCHE-1613194

PATIENT
  Age: 76 Year
  Sex: Male

DRUGS (1)
  1. MABTHERA [Suspect]
     Active Substance: RITUXIMAB
     Indication: RHEUMATOID ARTHRITIS
     Dosage: 1 VIAL, 500 MG 50 ML
     Route: 042
     Dates: start: 20150629, end: 20150629

REACTIONS (4)
  - Malignant neoplasm of pleura [Recovering/Resolving]
  - Off label use [Unknown]
  - Haemothorax [Recovering/Resolving]
  - Mesothelioma [Recovering/Resolving]

NARRATIVE: CASE EVENT DATE: 20150706
